FAERS Safety Report 8804640 (Version 1)
Quarter: 2012Q4

REPORT INFORMATION
  Report Type: 
  Country: US (occurrence: US)
  Receive Date: 20120924
  Receipt Date: 20120924
  Transmission Date: 20130627
  Serious: Yes (Other)
  Sender: FDA-Public Use
  Company Number: US-PURDUE-USA-2012-0092574

PATIENT
  Age: 44 Year
  Sex: Female
  Weight: 71.66 kg

DRUGS (3)
  1. OXYCONTIN (NDA 22-272) [Suspect]
     Indication: PAIN
     Dosage: 30 mg, see text
     Route: 048
     Dates: start: 20120827
  2. OXYCODONE HCL TABLETS (91-490) [Concomitant]
     Indication: BREAKTHROUGH PAIN
     Dosage: 30 mg, 5/day
     Route: 048
  3. OPANA [Concomitant]
     Indication: RHEUMATOID ARTHRITIS
     Dosage: 40 mg, tid
     Route: 048
     Dates: end: 20120826

REACTIONS (16)
  - Weight increased [Not Recovered/Not Resolved]
  - Drug withdrawal syndrome [Unknown]
  - General physical health deterioration [Unknown]
  - Product solubility abnormal [Unknown]
  - Medication residue [Not Recovered/Not Resolved]
  - Migraine [Unknown]
  - Constipation [Not Recovered/Not Resolved]
  - Abdominal pain upper [Not Recovered/Not Resolved]
  - Dyspepsia [Not Recovered/Not Resolved]
  - Vision blurred [Not Recovered/Not Resolved]
  - Depression [Unknown]
  - Vomiting [Unknown]
  - Anxiety [Unknown]
  - Irritability [Unknown]
  - Asthenia [Unknown]
  - Drug ineffective [Unknown]
